FAERS Safety Report 20169801 (Version 1)
Quarter: 2021Q4

REPORT INFORMATION
  Report Type: Report from Study
  Country: DE (occurrence: DE)
  Receive Date: 20211210
  Receipt Date: 20211210
  Transmission Date: 20220303
  Serious: Yes (Other)
  Sender: FDA-Public Use
  Company Number: DE-JNJFOC-20181211218

PATIENT
  Age: 4 Decade
  Sex: Female

DRUGS (1)
  1. SIMPONI [Suspect]
     Active Substance: GOLIMUMAB
     Indication: Axial spondyloarthritis
     Route: 058

REACTIONS (7)
  - Arrhythmia [Unknown]
  - Urinary tract infection [Unknown]
  - Headache [Unknown]
  - Abdominal discomfort [Unknown]
  - Influenza like illness [Unknown]
  - Oral candidiasis [Unknown]
  - Vaginal infection [Unknown]

NARRATIVE: CASE EVENT DATE: 20180601
